FAERS Safety Report 21678004 (Version 1)
Quarter: 2022Q4

REPORT INFORMATION
  Report Type: Spontaneous
  Country: DE (occurrence: DE)
  Receive Date: 20221203
  Receipt Date: 20221203
  Transmission Date: 20230113
  Serious: Yes (Other)
  Sender: FDA-Public Use
  Company Number: DE-TEVA-2022-DE-2823379

PATIENT
  Age: 46 Year
  Sex: Male
  Weight: 62 kg

DRUGS (1)
  1. AJOVY [Suspect]
     Active Substance: FREMANEZUMAB-VFRM
     Indication: Migraine
     Route: 058
     Dates: start: 20220413, end: 20220413

REACTIONS (14)
  - Haemorrhage [Unknown]
  - Migraine [Unknown]
  - Oedema peripheral [Recovered/Resolved]
  - Petechiae [Unknown]
  - Gastrointestinal disorder [Recovered/Resolved]
  - Erythema [Not Recovered/Not Resolved]
  - Fluid retention [Not Recovered/Not Resolved]
  - Spider vein [Unknown]
  - Vascular injury [Unknown]
  - Arthralgia [Unknown]
  - Bone pain [Unknown]
  - Neck pain [Unknown]
  - Skin discolouration [Unknown]
  - Headache [Unknown]

NARRATIVE: CASE EVENT DATE: 20220401
